FAERS Safety Report 24410969 (Version 2)
Quarter: 2024Q4

REPORT INFORMATION
  Report Type: Spontaneous
  Country: FR (occurrence: FR)
  Receive Date: 20241008
  Receipt Date: 20241026
  Transmission Date: 20250115
  Serious: Yes (Life-Threatening)
  Sender: CSL BEHRING
  Company Number: None

PATIENT
  Age: 21 Year
  Sex: Male
  Weight: 65 kg

DRUGS (1)
  1. PRIVIGEN [Suspect]
     Active Substance: HUMAN IMMUNOGLOBULIN G
     Indication: Hypogammaglobulinaemia
     Route: 042
     Dates: start: 20240920, end: 20240920

REACTIONS (6)
  - Respiratory distress [Recovered/Resolved]
  - Anaphylactic reaction [Recovered/Resolved]
  - Tachycardia [Recovered/Resolved]
  - Contraindicated product prescribed [Recovered/Resolved]
  - Hypertension [Recovered/Resolved]
  - Therapeutic drug monitoring analysis incorrectly performed [Recovered/Resolved]

NARRATIVE: CASE EVENT DATE: 20240920
